FAERS Safety Report 5663973-5 (Version None)
Quarter: 2008Q1

REPORT INFORMATION
  Report Type: 
  Country: None (occurrence: None)
  Receive Date: 20080314
  Receipt Date: 20080304
  Transmission Date: 20080703
  Serious: Yes (Hospitalization)
  Sender: FDA-Public Use
  Company Number: NO-JNJFOC-20080301230

PATIENT
  Sex: Female
  Weight: 105 kg

DRUGS (9)
  1. INFLIXIMAB [Suspect]
     Dosage: 50-100 MG OF INFLIXIMAB.
  2. INFLIXIMAB [Suspect]
  3. INFLIXIMAB [Suspect]
     Indication: RHEUMATOID ARTHRITIS
     Dosage: 400 MG OR 100 MG + 200 MG (DISCREPANT INFORMATION).
  4. NORSPAN [Concomitant]
  5. METHOTREXATE [Concomitant]
  6. FOLIC ACID [Concomitant]
  7. ACETAMINOPHEN [Concomitant]
  8. MOBIC [Concomitant]
  9. DIURETICA [Concomitant]

REACTIONS (3)
  - DYSPNOEA [None]
  - FIBRIN D DIMER INCREASED [None]
  - INFUSION RELATED REACTION [None]
